FAERS Safety Report 5831766-1 (Version None)
Quarter: 2008Q3

REPORT INFORMATION
  Report Type: 
  Country: None (occurrence: None)
  Receive Date: 20080803
  Receipt Date: 20080724
  Transmission Date: 20090109
  Serious: Yes (Hospitalization)
  Sender: FDA-Public Use
  Company Number: PHHO2008MX08126

PATIENT
  Sex: Male

DRUGS (6)
  1. CYCLOSPORINE [Suspect]
     Indication: RENAL TRANSPLANT
     Dosage: 250 MG, QD
     Route: 048
     Dates: start: 20070420
  2. CYCLOSPORINE [Suspect]
     Dosage: 300 MG, QD
     Route: 048
     Dates: start: 20070602
  3. MYCOPHENOLATE MOFETIL [Concomitant]
     Dosage: 2 G / DAY
     Dates: start: 20070420
  4. PREDNISONE [Concomitant]
     Dosage: UNK
     Dates: start: 20070423
  5. BASILIXIMAB [Concomitant]
     Dosage: 20 MG
     Dates: start: 20070420
  6. METHYLPREDNISOLONE [Concomitant]
     Dosage: 500 MG
     Dates: start: 20070420

REACTIONS (10)
  - ABDOMINAL PAIN [None]
  - BILE DUCT STONE [None]
  - BILIARY DRAINAGE [None]
  - BLOOD AMYLASE INCREASED [None]
  - CHOLECYSTECTOMY [None]
  - CHOLELITHIASIS [None]
  - LIPASE INCREASED [None]
  - NAUSEA [None]
  - PANCREATITIS ACUTE [None]
  - VOMITING [None]
